FAERS Safety Report 23444669 (Version 1)
Quarter: 2024Q1

REPORT INFORMATION
  Report Type: Spontaneous
  Country: US (occurrence: None)
  Receive Date: 20240125
  Receipt Date: 20240125
  Transmission Date: 20240410
  Serious: No
  Sender: FDA-Public Use
  Company Number: None

PATIENT
  Age: 36 Year
  Sex: Female
  Weight: 61.2 kg

DRUGS (2)
  1. LEVOFLOXACIN [Suspect]
     Active Substance: LEVOFLOXACIN
     Dosage: OTHER QUANTITY : 1 CAPSULE(S);?FREQUENCY : TWICE A DAY;?
     Dates: start: 20240101, end: 20240111
  2. TINIDAZOLE [Suspect]
     Active Substance: TINIDAZOLE

REACTIONS (3)
  - Tendon pain [None]
  - Blister [None]
  - Migraine [None]

NARRATIVE: CASE EVENT DATE: 20240111
